FAERS Safety Report 12796570 (Version 1)
Quarter: 2016Q3

REPORT INFORMATION
  Report Type: Spontaneous
  Country: GB (occurrence: GB)
  Receive Date: 20160929
  Receipt Date: 20160929
  Transmission Date: 20161109
  Serious: Yes (Other)
  Sender: FDA-Public Use
  Company Number: GB-PFIZER INC-2016451213

PATIENT
  Age: 89 Year
  Sex: Female
  Weight: 76 kg

DRUGS (12)
  1. BUPRENORPHINE. [Concomitant]
     Active Substance: BUPRENORPHINE
     Indication: PAIN
     Dosage: APPLY ONE EVERY 7 DAYS AS NEEDED
     Dates: start: 20151201
  2. FENBID [Concomitant]
     Active Substance: IBUPROFEN
     Dosage: 1 DF, 2X/DAY
     Dates: start: 20160404
  3. INDAPAMIDE. [Concomitant]
     Active Substance: INDAPAMIDE
     Dosage: 1 DF, 1X/DAY EACH MORNING
     Dates: start: 20151201
  4. LEVOTHYROXINE. [Concomitant]
     Active Substance: LEVOTHYROXINE
     Dosage: 1 DF, 1X/DAY EACH MORNING
     Dates: start: 20160304
  5. OMEPRAZOLE. [Concomitant]
     Active Substance: OMEPRAZOLE
     Dosage: 1 DF, 1X/DAY
     Dates: start: 20160913
  6. BISOPROLOL [Concomitant]
     Active Substance: BISOPROLOL
     Dosage: 1 DF, 1X/DAY
     Dates: start: 20151201
  7. IBUPROFEN. [Suspect]
     Active Substance: IBUPROFEN
     Dosage: UNK
     Dates: start: 20160921
  8. BUTEC [Concomitant]
     Active Substance: BUPRENORPHINE
     Indication: PAIN
     Dosage: APPLY ONE EVERY 7 DAYS AS NEEDED
     Dates: start: 20160919
  9. LOSARTAN. [Concomitant]
     Active Substance: LOSARTAN
     Dosage: 1 DF, 1X/DAY
     Dates: start: 20151201
  10. FLEXITOL HEEL [Concomitant]
     Dosage: 1 DF, 2X/DAY
     Dates: start: 20151201
  11. SENNA [Concomitant]
     Active Substance: SENNA LEAF\SENNOSIDES\SENNOSIDES A AND B
     Dosage: TAKE 1 OR 2 AT NIGHT
     Dates: start: 20151201
  12. LACTULOSE. [Concomitant]
     Active Substance: LACTULOSE
     Dosage: 5ML UP TO TWICE DAILY
     Dates: start: 20160722, end: 20160821

REACTIONS (1)
  - Acute kidney injury [Unknown]

NARRATIVE: CASE EVENT DATE: 20160921
